FAERS Safety Report 13715892 (Version 2)
Quarter: 2017Q4

REPORT INFORMATION
  Report Type: Spontaneous
  Country: US (occurrence: US)
  Receive Date: 20170705
  Receipt Date: 20171122
  Transmission Date: 20180320
  Serious: Yes (Other)
  Sender: FDA-Public Use
  Company Number: US-ASTRAZENECA-2017SE66795

PATIENT
  Age: 17714 Day
  Sex: Female
  Weight: 82.5 kg

DRUGS (35)
  1. PANTOPRAZOLE [Suspect]
     Active Substance: PANTOPRAZOLE
     Indication: HYPERCHLORHYDRIA
     Route: 048
     Dates: start: 20140424
  2. SODIUM BICARBONATE. [Suspect]
     Active Substance: SODIUM BICARBONATE
     Indication: HYPERCHLORHYDRIA
     Route: 048
     Dates: start: 2008, end: 2015
  3. SODIUM BICARBONATE. [Suspect]
     Active Substance: SODIUM BICARBONATE
     Indication: HYPERCHLORHYDRIA
     Route: 048
     Dates: start: 20130130
  4. LEVAQUIN [Concomitant]
     Active Substance: LEVOFLOXACIN
  5. VERAMYST [Concomitant]
     Active Substance: FLUTICASONE FUROATE
  6. HCTZ [Concomitant]
     Active Substance: HYDROCHLOROTHIAZIDE
  7. NEXIUM [Suspect]
     Active Substance: ESOMEPRAZOLE MAGNESIUM
     Indication: HYPERCHLORHYDRIA
     Route: 048
     Dates: start: 2008, end: 2015
  8. DIPHEN/ATROP [Concomitant]
     Active Substance: ATROPINE SULFATE\DIPHENOXYLATE
  9. METOPROLOL TARTRATE. [Concomitant]
     Active Substance: METOPROLOL TARTRATE
  10. FERROUS SULFATE. [Concomitant]
     Active Substance: FERROUS SULFATE
  11. NEXIUM [Suspect]
     Active Substance: ESOMEPRAZOLE MAGNESIUM
     Indication: HYPERCHLORHYDRIA
     Route: 048
     Dates: start: 20080828
  12. HYDROCO/APAP [Concomitant]
     Active Substance: ACETAMINOPHEN\HYDROCODONE
  13. AZITHROMYCIN ANHYDROUS. [Concomitant]
     Active Substance: AZITHROMYCIN ANHYDROUS
  14. GABAPENTIN. [Concomitant]
     Active Substance: GABAPENTIN
  15. FUROSEMIDE. [Concomitant]
     Active Substance: FUROSEMIDE
  16. OMEPRAZOLE. [Suspect]
     Active Substance: OMEPRAZOLE
     Indication: HYPERCHLORHYDRIA
     Route: 048
     Dates: start: 2008, end: 2015
  17. OMEPRAZOLE. [Suspect]
     Active Substance: OMEPRAZOLE
     Indication: HYPERCHLORHYDRIA
     Route: 048
     Dates: start: 20121010
  18. PREDNISONE. [Concomitant]
     Active Substance: PREDNISONE
  19. PENICILLIN VK [Concomitant]
     Active Substance: PENICILLIN V POTASSIUM
  20. AMOXICILLIN. [Concomitant]
     Active Substance: AMOXICILLIN
  21. PANTOPRAZOLE [Suspect]
     Active Substance: PANTOPRAZOLE
     Indication: HYPERCHLORHYDRIA
     Route: 048
     Dates: start: 2008, end: 2015
  22. TUSSIONEX PENNKINETIC [Concomitant]
     Active Substance: CHLORPHENIRAMINE\HYDROCODONE
  23. LISINOPRIL. [Concomitant]
     Active Substance: LISINOPRIL
  24. METRONIDAZOL [Concomitant]
     Active Substance: METRONIDAZOLE
  25. TERCONAZOLE. [Concomitant]
     Active Substance: TERCONAZOLE
  26. MUCINEX [Concomitant]
     Active Substance: GUAIFENESIN
  27. DICLOXACILLIN [Concomitant]
     Active Substance: DICLOXACILLIN
  28. SKELAXIN [Concomitant]
     Active Substance: METAXALONE
  29. CIPROFLOXACIN. [Concomitant]
     Active Substance: CIPROFLOXACIN
  30. ATORVASTATIN [Concomitant]
     Active Substance: ATORVASTATIN
  31. NOVOLOG [Concomitant]
     Active Substance: INSULIN ASPART
  32. ALBUTEROL. [Concomitant]
     Active Substance: ALBUTEROL
  33. NOVOLIN [Concomitant]
     Active Substance: INSULIN HUMAN
  34. IBUPROFEN. [Concomitant]
     Active Substance: IBUPROFEN
  35. ALPRAZOLAM. [Concomitant]
     Active Substance: ALPRAZOLAM

REACTIONS (6)
  - Chronic kidney disease [Unknown]
  - Tubulointerstitial nephritis [Unknown]
  - Diabetic nephropathy [Unknown]
  - Renal failure [Unknown]
  - End stage renal disease [Unknown]
  - Acute kidney injury [Unknown]

NARRATIVE: CASE EVENT DATE: 20120209
